FAERS Safety Report 7282487-2 (Version None)
Quarter: 2011Q1

REPORT INFORMATION
  Report Type: 
  Country: None (occurrence: None)
  Receive Date: 20110209
  Receipt Date: 20110131
  Transmission Date: 20110831
  Serious: Yes (Other)
  Sender: FDA-Public Use
  Company Number: AR-GENZYME-FABR-1001796

PATIENT

DRUGS (1)
  1. FABRAZYME [Suspect]
     Indication: FABRY'S DISEASE
     Dosage: UNK
     Route: 042

REACTIONS (3)
  - PROTEINURIA [None]
  - GLOMERULAR FILTRATION RATE DECREASED [None]
  - DEPRESSION [None]
